FAERS Safety Report 5952213-5 (Version None)
Quarter: 2008Q4

REPORT INFORMATION
  Report Type: 
  Country: None (occurrence: None)
  Receive Date: 20081113
  Receipt Date: 20081103
  Transmission Date: 20090506
  Serious: Yes (Hospitalization)
  Sender: FDA-Public Use
  Company Number: BR-ABBOTT-08P-020-0485612-00

PATIENT
  Sex: Female

DRUGS (5)
  1. AKINETON [Suspect]
     Indication: PARKINSON'S DISEASE
     Dates: start: 20080901
  2. AKINETON [Suspect]
  3. AKINETON [Suspect]
  4. DIAZEPAM [Concomitant]
     Indication: INSOMNIA
     Route: 048
  5. SINEMET [Concomitant]
     Indication: PARKINSON'S DISEASE
     Dosage: 375MG/3.75MG (1.5 TAB PER DAY)
     Route: 048
     Dates: start: 20050101

REACTIONS (2)
  - DRUG INEFFECTIVE [None]
  - PARKINSONIAN CRISIS [None]
